FAERS Safety Report 12489217 (Version 1)
Quarter: 2016Q2

REPORT INFORMATION
  Report Type: Spontaneous
  Country: FR (occurrence: FR)
  Receive Date: 20160622
  Receipt Date: 20160622
  Transmission Date: 20160815
  Serious: Yes (Hospitalization)
  Sender: FDA-Public Use
  Company Number: FR-ABBVIE-16P-163-1648170-00

PATIENT
  Age: 43 Year
  Sex: Female

DRUGS (5)
  1. DEPAKOTE [Suspect]
     Active Substance: DIVALPROEX SODIUM
     Route: 065
     Dates: end: 201512
  2. DEPAKOTE [Suspect]
     Active Substance: DIVALPROEX SODIUM
     Route: 065
     Dates: start: 201405
  3. ABILIFY [Suspect]
     Active Substance: ARIPIPRAZOLE
     Indication: SCHIZOAFFECTIVE DISORDER
     Route: 030
     Dates: start: 201405
  4. DEPAKOTE [Suspect]
     Active Substance: DIVALPROEX SODIUM
     Indication: SCHIZOAFFECTIVE DISORDER
     Route: 065
     Dates: start: 2005, end: 201403
  5. RISPERDAL CONSTA [Suspect]
     Active Substance: RISPERIDONE
     Indication: SCHIZOAFFECTIVE DISORDER
     Route: 048
     Dates: start: 2005, end: 201403

REACTIONS (11)
  - Anxiety [Recovered/Resolved]
  - Treatment noncompliance [Unknown]
  - Insomnia [Recovered/Resolved]
  - Weight increased [Unknown]
  - Abnormal behaviour [Recovered/Resolved]
  - Illness anxiety disorder [Recovered/Resolved]
  - Amenorrhoea [Unknown]
  - Obsessive-compulsive disorder [Unknown]
  - Psychiatric decompensation [Unknown]
  - Impulse-control disorder [Unknown]
  - Persecutory delusion [Unknown]
